FAERS Safety Report 17836402 (Version 15)
Quarter: 2021Q1

REPORT INFORMATION
  Report Type: Spontaneous
  Country: CA (occurrence: CA)
  Receive Date: 20200529
  Receipt Date: 20210306
  Transmission Date: 20210419
  Serious: Yes (Other)
  Sender: FDA-Public Use
  Company Number: CA-CELLTRION INC.-2020CA022636

PATIENT

DRUGS (18)
  1. INFLECTRA [Suspect]
     Active Substance: INFLIXIMAB-DYYB
     Dosage: 400 MG EVERY 4 WEEKS
     Route: 042
     Dates: start: 20200820
  2. INFLECTRA [Suspect]
     Active Substance: INFLIXIMAB-DYYB
     Indication: COLITIS ULCERATIVE
     Dosage: 400 MG, AT 2, 6 WEEKS, THEN EVERY 8 WEEKS
     Route: 042
     Dates: start: 20200408, end: 20200408
  3. PREDNISONE. [Concomitant]
     Active Substance: PREDNISONE
     Dosage: UNK
     Dates: end: 202005
  4. INFLECTRA [Suspect]
     Active Substance: INFLIXIMAB-DYYB
     Dosage: 400 MG EVERY 4 WEEKS
     Route: 042
     Dates: start: 20200820
  5. INFLECTRA [Suspect]
     Active Substance: INFLIXIMAB-DYYB
     Dosage: 400 MG EVERY 4 WEEKS
     Route: 042
     Dates: start: 20200914
  6. INFLECTRA [Suspect]
     Active Substance: INFLIXIMAB-DYYB
     Dosage: 400 MG EVERY 4 WEEKS
     Route: 042
     Dates: start: 20210224
  7. INFLECTRA [Suspect]
     Active Substance: INFLIXIMAB-DYYB
     Dosage: 600 MG EVERY 4 WEEKS
     Route: 042
     Dates: start: 20200820
  8. INFLECTRA [Suspect]
     Active Substance: INFLIXIMAB-DYYB
     Dosage: 400 MG EVERY 4 WEEKS
     Route: 042
     Dates: start: 20201215
  9. BUSPIRONE [Concomitant]
     Active Substance: BUSPIRONE HYDROCHLORIDE
     Dosage: 15 MG, 2X/DAY
     Route: 065
     Dates: start: 20200312
  10. INFLECTRA [Suspect]
     Active Substance: INFLIXIMAB-DYYB
     Dosage: 400 MG, AT 2, 6 WEEKS, THEN EVERY 8 WEEKS
     Route: 042
     Dates: start: 20200423, end: 20200423
  11. INFLECTRA [Suspect]
     Active Substance: INFLIXIMAB-DYYB
     Dosage: 400 MG, AT 2, 6 WEEKS, THEN EVERY 8 WEEKS
     Route: 042
     Dates: start: 20200521, end: 20200521
  12. INFLECTRA [Suspect]
     Active Substance: INFLIXIMAB-DYYB
     Dosage: 400 MG, AT 2, 6 WEEKS, THEN EVERY 8 WEEKS
     Route: 042
     Dates: start: 20200616, end: 20200616
  13. INFLECTRA [Suspect]
     Active Substance: INFLIXIMAB-DYYB
     Dosage: 400 MG EVERY 4 WEEKS
     Route: 042
     Dates: start: 20201015
  14. INFLECTRA [Suspect]
     Active Substance: INFLIXIMAB-DYYB
     Dosage: 400 MG EVERY 4 WEEKS
     Route: 042
     Dates: start: 20201116
  15. INFLECTRA [Suspect]
     Active Substance: INFLIXIMAB-DYYB
     Dosage: 400 MG EVERY 4 WEEKS
     Route: 042
     Dates: start: 20200820
  16. PENTASA [Concomitant]
     Active Substance: MESALAMINE
     Dosage: 2000 MG, 2X/DAY
     Route: 065
     Dates: start: 20200315
  17. INFLECTRA [Suspect]
     Active Substance: INFLIXIMAB-DYYB
     Dosage: 400 MG, EVERY 4 WEEK
     Route: 042
     Dates: start: 20200616, end: 20200720
  18. INFLECTRA [Suspect]
     Active Substance: INFLIXIMAB-DYYB
     Dosage: 400 MG EVERY 4 WEEKS
     Route: 042
     Dates: start: 20200720, end: 20200720

REACTIONS (12)
  - Exposure to SARS-CoV-2 [Unknown]
  - Inappropriate schedule of product administration [Unknown]
  - Haematochezia [Unknown]
  - Malaise [Unknown]
  - Off label use [Unknown]
  - Drug level below therapeutic [Unknown]
  - Abdominal pain [Unknown]
  - Heart rate increased [Unknown]
  - Anxiety [Unknown]
  - SARS-CoV-2 test positive [Unknown]
  - Pallor [Unknown]
  - Condition aggravated [Recovering/Resolving]

NARRATIVE: CASE EVENT DATE: 2020
